FAERS Safety Report 8808923 (Version 1)
Quarter: 2012Q4

REPORT INFORMATION
  Report Type: Spontaneous
  Country: US (occurrence: None)
  Receive Date: 20120920
  Receipt Date: 20120920
  Transmission Date: 20130627
  Serious: Yes (Other)
  Sender: FDA-Public Use
  Company Number: None

PATIENT

DRUGS (3)
  1. KETAMINE [Suspect]
     Dosage: concentrate, injection 500 mg/ 5 ml (100 mg, vial, 5 ml
  2. KETALAR [Suspect]
     Dosage: concentrate, injection 500 mg/ 5 ml (100 mg, vial, 5 ml
  3. LEVETIRACETAM [Suspect]
     Dosage: concentrate, injection 500 mg/ 5 ml (100 mg, vial, 5 ml

REACTIONS (2)
  - Wrong drug administered [None]
  - Product name confusion [None]
